FAERS Safety Report 24902729 (Version 1)
Quarter: 2025Q1

REPORT INFORMATION
  Report Type: Spontaneous
  Country: US (occurrence: US)
  Receive Date: 20250130
  Receipt Date: 20250130
  Transmission Date: 20250409
  Serious: Yes (Other)
  Sender: Kenvue
  Company Number: US-KENVUE-20250108937

PATIENT
  Age: 2 Year
  Sex: Male

DRUGS (1)
  1. TYLENOL EXTRA STRENGTH [Suspect]
     Active Substance: ACETAMINOPHEN
     Indication: Accidental exposure to product
     Route: 048
     Dates: start: 1984, end: 1984

REACTIONS (5)
  - Coma [Recovered/Resolved]
  - Liver injury [Unknown]
  - Nerve injury [Not Recovered/Not Resolved]
  - Accidental overdose [Unknown]
  - Mental disorder [Not Recovered/Not Resolved]

NARRATIVE: CASE EVENT DATE: 19840101
